FAERS Safety Report 11747408 (Version 2)
Quarter: 2022Q4

REPORT INFORMATION
  Report Type: Spontaneous
  Country: US (occurrence: US)
  Receive Date: 20151117
  Receipt Date: 20221007
  Transmission Date: 20230112
  Serious: No
  Sender: FDA-Public Use
  Company Number: US-BAYER-2015-465878

PATIENT
  Age: 60 Year
  Sex: Female

DRUGS (10)
  1. CLIMARA [Suspect]
     Active Substance: ESTRADIOL
     Dosage: 0.05 MG/24HR, CONT
     Route: 062
     Dates: start: 20150828, end: 201510
  2. CLIMARA [Suspect]
     Active Substance: ESTRADIOL
     Dosage: 0.05 MG/24HR, CONT
     Route: 062
     Dates: start: 20151101
  3. GLYBURIDE\METFORMIN [Concomitant]
     Active Substance: GLYBURIDE\METFORMIN
     Dosage: 500 MG, BID
     Route: 048
  4. ENALAPRIL [Concomitant]
     Active Substance: ENALAPRIL
     Dosage: 10 MG, UNK
     Route: 048
  5. JANUVIA [Concomitant]
     Active Substance: SITAGLIPTIN PHOSPHATE
     Dosage: 100 MG, QD
     Route: 048
  6. TRULICITY [Concomitant]
     Active Substance: DULAGLUTIDE
  7. GLIPIZIDE [Concomitant]
     Active Substance: GLIPIZIDE
  8. JARDIANCE [Concomitant]
     Active Substance: EMPAGLIFLOZIN
  9. AMLODIPINE [Concomitant]
     Active Substance: AMLODIPINE BESYLATE
  10. ROSUVASTATIN CALCIUM [Concomitant]
     Active Substance: ROSUVASTATIN CALCIUM

REACTIONS (6)
  - Alopecia [Not Recovered/Not Resolved]
  - Night sweats [Recovered/Resolved]
  - Hot flush [Recovered/Resolved]
  - Device adhesion issue [None]
  - Inappropriate schedule of product administration [None]
  - Wrong technique in product usage process [None]

NARRATIVE: CASE EVENT DATE: 20150101
